FAERS Safety Report 9232772 (Version 2)
Quarter: 2013Q2

REPORT INFORMATION
  Report Type: Spontaneous
  Country: AU (occurrence: AU)
  Receive Date: 20130416
  Receipt Date: 20130529
  Transmission Date: 20140414
  Serious: No
  Sender: FDA-Public Use
  Company Number: AU-JNJFOC-20130403276

PATIENT
  Sex: Female
  Weight: 65 kg

DRUGS (1)
  1. DUROGESIC [Suspect]
     Indication: BACK PAIN
     Route: 062

REACTIONS (3)
  - Breakthrough pain [Recovering/Resolving]
  - Product quality issue [Unknown]
  - Wrong technique in drug usage process [Unknown]
